FAERS Safety Report 7686683-1 (Version None)
Quarter: 2011Q3

REPORT INFORMATION
  Report Type: 
  Country: None (occurrence: None)
  Receive Date: 20110816
  Receipt Date: 20110805
  Transmission Date: 20111222
  Serious: Yes (Hospitalization, Other)
  Sender: FDA-Public Use
  Company Number: FR-ACTELION-A-CH2008-21078

PATIENT
  Sex: Male

DRUGS (5)
  1. TRACLEER [Suspect]
     Dosage: 62.5 MG, BID
     Route: 048
     Dates: start: 20080201, end: 20080501
  2. COUMADIN [Suspect]
     Dosage: UNK
     Dates: start: 20080501
  3. TRACLEER [Suspect]
     Indication: PORTOPULMONARY HYPERTENSION
     Dosage: 125 MG, BID
     Route: 048
     Dates: start: 20080501, end: 20080628
  4. IMOVANE [Concomitant]
  5. NEXIUM [Concomitant]

REACTIONS (16)
  - ANAEMIA [None]
  - LYMPHOPENIA [None]
  - RIGHT VENTRICULAR FAILURE [None]
  - RENAL FAILURE [None]
  - LEUKOPENIA [None]
  - HAEMOGLOBIN DECREASED [None]
  - AGRANULOCYTOSIS [None]
  - HAEMATOCRIT DECREASED [None]
  - MELAENA [None]
  - RECTAL HAEMORRHAGE [None]
  - BONE MARROW FAILURE [None]
  - THROMBOCYTOPENIA [None]
  - PANCYTOPENIA [None]
  - OEDEMA PERIPHERAL [None]
  - NEUTROPENIA [None]
  - PLATELET COUNT DECREASED [None]
